FAERS Safety Report 6807139-1 (Version None)
Quarter: 2010Q2

REPORT INFORMATION
  Report Type: 
  Country: None (occurrence: None)
  Receive Date: 20100629
  Receipt Date: 20080730
  Transmission Date: 20101027
  Serious: Yes (Other)
  Sender: FDA-Public Use
  Company Number: US-PFIZER INC-2008050820

PATIENT
  Sex: Male
  Weight: 84 kg

DRUGS (3)
  1. XANAX [Suspect]
     Indication: ANXIETY DISORDER
  2. XANAX [Suspect]
     Indication: PANIC ATTACK
  3. LUVOX [Concomitant]

REACTIONS (6)
  - ANXIETY [None]
  - ASTHENIA [None]
  - DEPENDENCE [None]
  - DISTURBANCE IN ATTENTION [None]
  - DRUG TOLERANCE [None]
  - WITHDRAWAL SYNDROME [None]
